FAERS Safety Report 6483886-9 (Version None)
Quarter: 2009Q4

REPORT INFORMATION
  Report Type: 
  Country: None (occurrence: None)
  Receive Date: 20091209
  Receipt Date: 20091130
  Transmission Date: 20100525
  Serious: Yes (Hospitalization)
  Sender: FDA-Public Use
  Company Number: DE-ABBOTT-09P-062-0611253-00

PATIENT
  Sex: Male
  Weight: 87 kg

DRUGS (2)
  1. KALETRA [Suspect]
     Indication: HIV INFECTION
     Dosage: 4 TABLETS DAILY
     Route: 048
     Dates: start: 20080508
  2. TRUVADA [Concomitant]
     Indication: HIV INFECTION
     Route: 048

REACTIONS (1)
  - SURGERY [None]
